FAERS Safety Report 9410231 (Version 1)
Quarter: 2013Q2

REPORT INFORMATION
  Report Type: Spontaneous
  Country: DE (occurrence: None)
  Receive Date: 20130606
  Receipt Date: 20130606
  Transmission Date: 20140414
  Serious: Yes (Death, Other)
  Sender: FDA-Public Use
  Company Number: 2013P1005710

PATIENT
  Age: 59 Year
  Sex: Female

DRUGS (2)
  1. GLYBURIDE [Suspect]
     Indication: SKIN DISORDER
  2. GLYBURIDE [Suspect]
     Indication: PRURITUS

REACTIONS (11)
  - Encephalopathy [None]
  - Brain oedema [None]
  - Hypoglycaemia [None]
  - Septic shock [None]
  - Blood glucose increased [None]
  - Brain injury [None]
  - Epilepsy [None]
  - Pneumonia aspiration [None]
  - Overdose [None]
  - Cardiomyopathy [None]
  - Dysphagia [None]
